FAERS Safety Report 6347564-9 (Version None)
Quarter: 2009Q3

REPORT INFORMATION
  Report Type: 
  Country: None (occurrence: None)
  Receive Date: 20090909
  Receipt Date: 20090909
  Transmission Date: 20100115
  Serious: Yes (Other)
  Sender: FDA-Public Use
  Company Number: None

PATIENT
  Sex: Female
  Weight: 112.4921 kg

DRUGS (1)
  1. ICYHOT-MEDICATED NO MESS MAXIMUM STRENGTH CHATTEM [Suspect]
     Indication: MYALGIA
     Dosage: ROLL ON APPLICATOR - GENEROUS 3 TO 4 TIMES DAILY TOP
     Route: 061
     Dates: start: 20090906, end: 20090907

REACTIONS (4)
  - CAUSTIC INJURY [None]
  - ERYTHEMA [None]
  - SCAB [None]
  - SKIN EXFOLIATION [None]
